APPROVED DRUG PRODUCT: DOXYCYCLINE
Active Ingredient: DOXYCYCLINE
Strength: EQ 150MG BASE
Dosage Form/Route: TABLET;ORAL
Application: A209582 | Product #004 | TE Code: AB
Applicant: ZYDUS PHARMACEUTICALS USA INC
Approved: Sep 28, 2017 | RLD: No | RS: No | Type: RX